FAERS Safety Report 8057093-2 (Version None)
Quarter: 2012Q1

REPORT INFORMATION
  Report Type: 
  Country: None (occurrence: None)
  Receive Date: 20120119
  Receipt Date: 20120118
  Transmission Date: 20120608
  Serious: Yes (Other)
  Sender: FDA-Public Use
  Company Number: US-PFIZER INC-2012014832

PATIENT
  Sex: Female
  Weight: 90.249 kg

DRUGS (12)
  1. CHANTIX [Suspect]
     Indication: SMOKING CESSATION THERAPY
     Dosage: UNK
     Route: 048
     Dates: start: 20120108
  2. ACETYLSALICYLIC ACID [Concomitant]
     Indication: CARDIAC DISORDER
     Dosage: 325 MG, 2X/DAY
  3. GEODON [Concomitant]
     Indication: SLEEP DISORDER
     Dosage: 160 MG, DAILY
  4. GLIPIZIDE [Concomitant]
     Indication: DIABETES MELLITUS
     Dosage: 10 MG, DAILY
  5. LASIX [Concomitant]
     Indication: SWELLING
     Dosage: 80 MG, 2X/DAY
     Route: 048
  6. FLEXERIL [Concomitant]
     Dosage: UNK
     Route: 048
  7. CYMBALTA [Concomitant]
     Indication: DEPRESSION
     Dosage: 120 MG, UNK
     Route: 048
  8. VALIUM [Concomitant]
     Indication: ANXIETY
     Dosage: 10 MG, AS NEEDED
     Route: 048
  9. OXYBUTYNIN [Concomitant]
     Dosage: 5 MG, DAILY
  10. CHANTIX [Suspect]
     Dosage: 1 MG, 2X/DAY
     Route: 048
     Dates: end: 20120117
  11. TRAMADOL [Concomitant]
     Indication: PAIN
     Dosage: 50 MG, AS NEEDED
  12. HUMULIN R [Concomitant]
     Indication: DIABETES MELLITUS
     Dosage: UNK, DAILY

REACTIONS (2)
  - NIGHTMARE [None]
  - DEPRESSION [None]
